FAERS Safety Report 6077382-0 (Version None)
Quarter: 2009Q1

REPORT INFORMATION
  Report Type: 
  Country: None (occurrence: None)
  Receive Date: 20090213
  Receipt Date: 20090202
  Transmission Date: 20090719
  Serious: Yes (Death, Life-Threatening, Other)
  Sender: FDA-Public Use
  Company Number: JP-GENENTECH-271651

PATIENT
  Sex: Male

DRUGS (18)
  1. AVASTIN [Suspect]
     Indication: RECTAL CANCER RECURRENT
     Dosage: 350 MG, Q2W
     Route: 041
     Dates: start: 20080605, end: 20081106
  2. ELPLAT [Suspect]
     Indication: RECTAL CANCER RECURRENT
     Dosage: 150 MG, QD
     Route: 041
     Dates: start: 20081023, end: 20081106
  3. FLUOROURACIL [Concomitant]
     Indication: DRUG USE FOR UNKNOWN INDICATION
     Dosage: UNK
     Dates: start: 20080228, end: 20081024
  4. CALCIUM LEVOFOLINATE [Concomitant]
     Indication: DRUG USE FOR UNKNOWN INDICATION
     Dosage: UNK
     Dates: start: 20080228, end: 20081106
  5. TOPOTECAN [Concomitant]
     Indication: DRUG USE FOR UNKNOWN INDICATION
     Dosage: UNK
     Dates: start: 20080228, end: 20080911
  6. EPINEPHRINE [Concomitant]
     Indication: CARDIO-RESPIRATORY ARREST
     Dosage: 1 MG, X5
     Route: 042
     Dates: start: 20081106, end: 20081106
  7. NICORANDIL [Concomitant]
     Indication: ARTERIOSPASM CORONARY
     Dosage: 48 MG, TID
     Route: 041
     Dates: start: 20081106, end: 20081110
  8. VERAPAMIL HYDROCHLORIDE [Concomitant]
     Indication: ARTERIOSPASM CORONARY
     Dosage: 5 MG, QD
     Route: 013
     Dates: start: 20081106, end: 20081106
  9. LACTATED RINGER'S [Concomitant]
     Indication: DRUG USE FOR UNKNOWN INDICATION
     Dosage: 500 ML, UNK
     Dates: start: 20081106, end: 20081110
  10. TIENAM [Concomitant]
     Indication: SEPSIS
     Dosage: 1 G, BID
     Route: 041
     Dates: start: 20081109, end: 20081110
  11. VASOPRESSIN [Concomitant]
     Indication: HYPOTENSION
     Dosage: 20 U, BID
     Route: 041
     Dates: start: 20081109, end: 20081110
  12. BLOOD TRANSFUSION [Concomitant]
     Indication: DRUG USE FOR UNKNOWN INDICATION
     Dosage: 16 U, UNK
     Dates: start: 20081106
  13. BLOOD TRANSFUSION [Concomitant]
     Dosage: 4 U, UNK
     Dates: start: 20081107
  14. FRESH FROZEN PLASMA [Concomitant]
     Indication: DRUG USE FOR UNKNOWN INDICATION
     Dosage: 6 U, UNK
     Dates: start: 20081106
  15. FRESH FROZEN PLASMA [Concomitant]
     Dosage: 12 U, UNK
     Dates: start: 20081107
  16. FRESH FROZEN PLASMA [Concomitant]
     Dosage: 10 U, UNK
     Dates: start: 20081108
  17. FRESH FROZEN PLASMA [Concomitant]
     Dosage: 8 U, UNK
     Dates: start: 20081109
  18. POLYMYXIN [Concomitant]
     Indication: SEPTIC SHOCK
     Dosage: UNK
     Dates: start: 20081109, end: 20081110

REACTIONS (3)
  - CARDIO-RESPIRATORY ARREST [None]
  - GASTROINTESTINAL NECROSIS [None]
  - SEPSIS [None]
